FAERS Safety Report 6519857-3 (Version None)
Quarter: 2009Q4

REPORT INFORMATION
  Report Type: 
  Country: None (occurrence: None)
  Receive Date: 20091228
  Receipt Date: 20091228
  Transmission Date: 20100525
  Serious: Yes (Hospitalization)
  Sender: FDA-Public Use
  Company Number: None

PATIENT
  Age: 77 Year
  Sex: Female

DRUGS (2)
  1. COMPAZINE [Suspect]
     Indication: NAUSEA
     Dosage: 10 MG X1 IV
     Route: 042
     Dates: start: 20090820, end: 20090820
  2. ZOFRAN [Suspect]
     Indication: VOMITING
     Dosage: 4 MG X1 IV
     Route: 042
     Dates: start: 20090820, end: 20090820

REACTIONS (2)
  - DYSPNOEA [None]
  - UNRESPONSIVE TO STIMULI [None]
